FAERS Safety Report 6733338-3 (Version None)
Quarter: 2010Q2

REPORT INFORMATION
  Report Type: 
  Country: None (occurrence: None)
  Receive Date: 20100520
  Receipt Date: 20100513
  Transmission Date: 20101027
  Serious: Yes (Other)
  Sender: FDA-Public Use
  Company Number: US-PFIZER INC-2010060428

PATIENT

DRUGS (3)
  1. CELEBREX [Suspect]
     Dosage: UNK
  2. ACETYLSALICYLIC ACID [Suspect]
     Dosage: UNK
  3. PLAVIX [Suspect]
     Dosage: UNK

REACTIONS (2)
  - EMBOLIC STROKE [None]
  - STENT PLACEMENT [None]
